FAERS Safety Report 10065077 (Version 3)
Quarter: 2015Q2

REPORT INFORMATION
  Report Type: Spontaneous
  Country: US (occurrence: US)
  Receive Date: 20140408
  Receipt Date: 20150623
  Transmission Date: 20150821
  Serious: Yes (Death, Life-Threatening, Hospitalization, Other)
  Sender: FDA-Public Use
  Company Number: US-MERCK-1404USA004098

PATIENT
  Sex: Male
  Weight: 102.4 kg

DRUGS (1)
  1. JANUVIA [Suspect]
     Active Substance: SITAGLIPTIN PHOSPHATE
     Indication: TYPE 2 DIABETES MELLITUS
     Dosage: 100 MG, QD
     Route: 048
     Dates: start: 20080307, end: 201210

REACTIONS (34)
  - Metastases to lymph nodes [Unknown]
  - Osteoarthritis [Unknown]
  - Contusion [Unknown]
  - Catheter site erythema [Unknown]
  - Prostatomegaly [Unknown]
  - Pain [Not Recovered/Not Resolved]
  - Tinea cruris [Unknown]
  - Atrial fibrillation [Unknown]
  - Gastroenteritis viral [Unknown]
  - Tendon sheath incision [Unknown]
  - Blood glucose decreased [Unknown]
  - Anxiety [Unknown]
  - Cardiomyopathy [Unknown]
  - Pleural effusion [Unknown]
  - Back pain [Unknown]
  - Pancreatic carcinoma metastatic [Fatal]
  - Metastases to liver [Unknown]
  - Neuropathy peripheral [Unknown]
  - Asthma [Unknown]
  - Depression [Unknown]
  - Dermal cyst [Unknown]
  - Dizziness [Unknown]
  - Spinal operation [Unknown]
  - Colon adenoma [Unknown]
  - Splenic vein thrombosis [Unknown]
  - Cardiac pacemaker insertion [Unknown]
  - Hyperlipidaemia [Unknown]
  - Diverticulum [Unknown]
  - Influenza like illness [Unknown]
  - Sinusitis [Unknown]
  - Upper respiratory tract infection [Unknown]
  - Syncope [Unknown]
  - Lower limb fracture [Unknown]
  - Sinus node dysfunction [Unknown]

NARRATIVE: CASE EVENT DATE: 2010
